FAERS Safety Report 20716887 (Version 2)
Quarter: 2022Q2

REPORT INFORMATION
  Report Type: Spontaneous
  Country: JP (occurrence: JP)
  Receive Date: 20220416
  Receipt Date: 20220503
  Transmission Date: 20220721
  Serious: Yes (Death, Hospitalization, Other)
  Sender: FDA-Public Use
  Company Number: JP-AMGEN-JPNSP2022064390

PATIENT
  Age: 10 Year
  Sex: Male

DRUGS (2)
  1. BLINCYTO [Suspect]
     Active Substance: BLINATUMOMAB
     Indication: Precursor B-lymphoblastic lymphoma stage IV
     Dosage: UNK
     Route: 065
  2. INOTUZUMAB OZOGAMICIN [Concomitant]
     Active Substance: INOTUZUMAB OZOGAMICIN

REACTIONS (2)
  - Non-Hodgkin^s lymphoma [Fatal]
  - Off label use [Unknown]
